FAERS Safety Report 7585737-8 (Version None)
Quarter: 2011Q2

REPORT INFORMATION
  Report Type: 
  Country: None (occurrence: None)
  Receive Date: 20110624
  Receipt Date: 20110610
  Transmission Date: 20111010
  Serious: Yes (Hospitalization, Other)
  Sender: FDA-Public Use
  Company Number: AUR-APL-2011-02894

PATIENT
  Sex: Female
  Weight: 62 kg

DRUGS (4)
  1. SEROQUEL [Concomitant]
  2. MIRTAZAPINE [Suspect]
     Indication: DEPRESSION
     Dosage: (45 MG, 1 D),ORAL,(30 MG, 1 D),ORAL, (15 MG, 1  D),ORAL; UNTIL GESTATION WEEK 6-14,UNTIL GEST.14-2.3
     Route: 048
  3. MIRTAZAPINE [Suspect]
     Indication: DEPRESSION
     Dosage: (45 MG, 1 D),ORAL,(30 MG, 1 D),ORAL, (15 MG, 1  D),ORAL; UNTIL GESTATION WEEK 6-14,UNTIL GEST.14-2.3
     Route: 048
  4. MIRTAZAPINE [Suspect]
     Indication: DEPRESSION
     Dosage: (45 MG, 1 D),ORAL,(30 MG, 1 D),ORAL, (15 MG, 1  D),ORAL; UNTIL GESTATION WEEK 6-14,UNTIL GEST.14-2.3
     Route: 048

REACTIONS (2)
  - MATERNAL DRUGS AFFECTING FOETUS [None]
  - FOETAL GROWTH RESTRICTION [None]
